FAERS Safety Report 7945464-1 (Version None)
Quarter: 2011Q4

REPORT INFORMATION
  Report Type: 
  Country: None (occurrence: None)
  Receive Date: 20111129
  Receipt Date: 20111122
  Transmission Date: 20120403
  Serious: Yes (Other)
  Sender: FDA-Public Use
  Company Number: GB-BAYER-2011-111602

PATIENT
  Age: 23 Year
  Sex: Female
  Weight: 44 kg

DRUGS (3)
  1. NORDETTE-28 [Concomitant]
  2. CLOTRIMAZOLE [Suspect]
     Indication: CANDIDIASIS
     Dosage: 500 MG, UNK
     Route: 067
     Dates: start: 20111114, end: 20111114
  3. TRIMETHOPRIM [Concomitant]
     Dosage: 1 DF, QD
     Dates: start: 20111020, end: 20111025

REACTIONS (1)
  - VAGINAL HAEMORRHAGE [None]
